FAERS Safety Report 19363110 (Version 1)
Quarter: 2021Q2

REPORT INFORMATION
  Report Type: Other
  Country: DE (occurrence: DE)
  Receive Date: 20210603
  Receipt Date: 20210603
  Transmission Date: 20210717
  Serious: Yes (Hospitalization)
  Sender: FDA-Public Use
  Company Number: DE-CELLTRION INC.-2021DE006554

PATIENT

DRUGS (10)
  1. OXALIPLATIN. [Suspect]
     Active Substance: OXALIPLATIN
     Indication: GASTRIC CANCER
     Dosage: 165.6 MG
     Route: 042
     Dates: start: 20210111
  2. FLUOROURACIL. [Suspect]
     Active Substance: FLUOROURACIL
     Indication: GASTRIC CANCER
     Dosage: 5064.8 MG
     Route: 042
     Dates: start: 20210111
  3. RINGER ACETATE [CALCIUM CHLORIDE;POTASSIUM CHLORIDE] [Concomitant]
     Dosage: 44 MG
     Route: 042
     Dates: start: 20210119, end: 20210127
  4. TRASTUZUMAB (UNKNOWN) [Suspect]
     Active Substance: TRASTUZUMAB
     Indication: GASTRIC CANCER
     Dosage: 840 MG, EVERY 3 WEEKS
     Route: 042
     Dates: start: 20210111
  5. VOMEX [Concomitant]
     Active Substance: DIMENHYDRINATE
     Dosage: 50 MG
     Route: 048
     Dates: start: 20210123, end: 20210124
  6. DOCETAXEL. [Suspect]
     Active Substance: DOCETAXEL
     Indication: GASTRIC CANCER
     Dosage: 97.4 MG, EVERY 2 WEEKS
     Route: 042
     Dates: start: 20210111
  7. PERTUZUMAB. [Suspect]
     Active Substance: PERTUZUMAB
     Indication: GASTRIC CANCER
     Dosage: 640 MG, EVERY 3 WEEKS
     Route: 042
     Dates: start: 20210111
  8. LEUCOVORIN [FOLINIC ACID] [Suspect]
     Active Substance: LEUCOVORIN
     Indication: GASTRIC CANCER
     Dosage: 389.6 MG, EVERY 2 WEEKS
     Route: 042
     Dates: start: 20210111
  9. CISPLATIN. [Suspect]
     Active Substance: CISPLATIN
     Indication: GASTRIC CANCER
     Dosage: EVERY 3 WEEKS
     Route: 042
  10. CAPECITABINE. [Suspect]
     Active Substance: CAPECITABINE
     Indication: GASTRIC CANCER
     Dosage: D1?14 IN 3 WEEKLY SCHEDULE (1000 MG/M2/DAY)
     Route: 048

REACTIONS (2)
  - Diarrhoea [Recovered/Resolved]
  - Overdose [Unknown]

NARRATIVE: CASE EVENT DATE: 20210119
